FAERS Safety Report 12714346 (Version 1)
Quarter: 2016Q3

REPORT INFORMATION
  Report Type: Spontaneous
  Country: US (occurrence: US)
  Receive Date: 20160905
  Receipt Date: 20160905
  Transmission Date: 20161109
  Serious: No
  Sender: FDA-Public Use
  Company Number: US-JAZZ-2016-US-008886

PATIENT
  Sex: Male
  Weight: 79.37 kg

DRUGS (54)
  1. NAPROXEN. [Concomitant]
     Active Substance: NAPROXEN
  2. CRESTOR [Concomitant]
     Active Substance: ROSUVASTATIN CALCIUM
  3. BOTOX COSMETIC [Concomitant]
     Active Substance: ONABOTULINUMTOXINA
  4. ADDERALL XR [Concomitant]
     Active Substance: AMPHETAMINE ASPARTATE\AMPHETAMINE SULFATE\DEXTROAMPHETAMINE SACCHARATE\DEXTROAMPHETAMINE SULFATE
  5. ABILIFY [Concomitant]
     Active Substance: ARIPIPRAZOLE
  6. LEXAPRO [Concomitant]
     Active Substance: ESCITALOPRAM OXALATE
  7. CORTIZONE 10 [Concomitant]
     Active Substance: HYDROCORTISONE
  8. CYMBALTA [Concomitant]
     Active Substance: DULOXETINE HYDROCHLORIDE
  9. SAVELLA [Concomitant]
     Active Substance: MILNACIPRAN HYDROCHLORIDE
  10. VITAMIN E [Concomitant]
     Active Substance: .ALPHA.-TOCOPHEROL
  11. VERAMYST [Concomitant]
     Active Substance: FLUTICASONE FUROATE
  12. VITAMIN D3 [Concomitant]
     Active Substance: CHOLECALCIFEROL
  13. VITAMIN B1 [Concomitant]
     Active Substance: THIAMINE HYDROCHLORIDE
  14. CLARITIN [Concomitant]
     Active Substance: LORATADINE
  15. INDERAL LA [Concomitant]
     Active Substance: PROPRANOLOL HYDROCHLORIDE
  16. PANTOPRAZOLE SODIUM DR [Concomitant]
     Active Substance: PANTOPRAZOLE SODIUM
  17. LEVOTHYROXINE. [Concomitant]
     Active Substance: LEVOTHYROXINE
  18. VITAMIN B12 [Concomitant]
     Active Substance: CYANOCOBALAMIN
  19. WELLBUTRIN XL [Concomitant]
     Active Substance: BUPROPION HYDROCHLORIDE
  20. ENOVARX-AMITRIPTYLINE [Concomitant]
  21. MUPIROCIN. [Concomitant]
     Active Substance: MUPIROCIN
  22. PENNSAID [Concomitant]
     Active Substance: DICLOFENAC SODIUM
  23. PROVIGIL [Concomitant]
     Active Substance: MODAFINIL
  24. VITAMINS [Concomitant]
     Active Substance: VITAMINS
  25. XYREM [Suspect]
     Active Substance: SODIUM OXYBATE
     Indication: NARCOLEPSY
     Dosage: 2.25 G, BID
     Route: 048
     Dates: start: 200709, end: 200710
  26. ENOVARX-LIDOCAINE HCL [Concomitant]
  27. CONZIP [Concomitant]
     Active Substance: TRAMADOL HYDROCHLORIDE
  28. PROPRANOLOL [Concomitant]
     Active Substance: PROPRANOLOL\PROPRANOLOL HYDROCHLORIDE
  29. TOPAMAX [Concomitant]
     Active Substance: TOPIRAMATE
  30. LYRICA [Concomitant]
     Active Substance: PREGABALIN
  31. MOVANTIK [Concomitant]
     Active Substance: NALOXEGOL OXALATE
  32. PROPRANOLOL ER [Concomitant]
  33. VITAMIN B COMPLEX [Concomitant]
     Active Substance: CYANOCOBALAMIN\DEXPANTHENOL\NIACINAMIDE\PYRIDOXINE HYDROCHLORIDE\RIBOFLAVIN 5^-PHOSPHATE SODIUM\THIAMINE HYDROCHLORIDE\VITAMIN B COMPLEX
  34. VITAMIN E D ALPHA [Concomitant]
  35. CLARITIN-D 12 HOUR [Concomitant]
     Active Substance: LORATADINE\PSEUDOEPHEDRINE SULFATE
  36. XYREM [Suspect]
     Active Substance: SODIUM OXYBATE
     Dosage: DOSE ADJUSTMENTS
     Route: 048
  37. DAYTIME COLD RELIEF [Concomitant]
  38. FOLIC ACID. [Concomitant]
     Active Substance: FOLIC ACID
  39. ADDERALL [Concomitant]
     Active Substance: AMPHETAMINE ASPARTATE\AMPHETAMINE SULFATE\DEXTROAMPHETAMINE SACCHARATE\DEXTROAMPHETAMINE SULFATE
  40. BRINTELLIX [Concomitant]
     Active Substance: VORTIOXETINE HYDROBROMIDE
  41. TROKENDI XR [Concomitant]
     Active Substance: TOPIRAMATE
  42. TRAMADOL ER [Concomitant]
     Active Substance: TRAMADOL HYDROCHLORIDE
  43. SAPHRIS [Concomitant]
     Active Substance: ASENAPINE MALEATE
  44. LAMICTAL [Concomitant]
     Active Substance: LAMOTRIGINE
  45. FETZIMA ER [Concomitant]
  46. HORIZANT ER [Concomitant]
  47. XYREM [Suspect]
     Active Substance: SODIUM OXYBATE
     Dosage: 4 G, BID
     Route: 048
  48. VIIBRYD [Concomitant]
     Active Substance: VILAZODONE HYDROCHLORIDE
  49. MEDROL [Concomitant]
     Active Substance: METHYLPREDNISOLONE
  50. COENZYME Q10 [Concomitant]
     Active Substance: UBIDECARENONE
  51. VICKS NYQUIL [Concomitant]
     Active Substance: ACETAMINOPHEN\DEXTROMETHORPHAN HYDROBROMIDE\DOXYLAMINE SUCCINATE
  52. ALEVE [Concomitant]
     Active Substance: NAPROXEN SODIUM
  53. BUTRANS [Concomitant]
     Active Substance: BUPRENORPHINE
  54. NUVIGIL [Concomitant]
     Active Substance: ARMODAFINIL

REACTIONS (1)
  - Enuresis [Recovered/Resolved]
